FAERS Safety Report 5587235-X (Version None)
Quarter: 2008Q1

REPORT INFORMATION
  Report Type: 
  Country: None (occurrence: None)
  Receive Date: 20080107
  Receipt Date: 20071225
  Transmission Date: 20080703
  Serious: Yes (Death, Other)
  Sender: FDA-Public Use
  Company Number: 2007-04308

PATIENT
  Age: 77 Year
  Sex: Male
  Weight: 65 kg

DRUGS (7)
  1. VELCADE [Suspect]
     Indication: MULTIPLE MYELOMA
     Dosage: 1.60 MG, INTRAVENOUS
     Route: 042
     Dates: start: 20070302, end: 20070325
  2. DEXAMETHASONE TAB [Concomitant]
  3. FAMOTIDINE [Concomitant]
  4. SELBEX (TEPRENONE) [Concomitant]
  5. BAKTAR (SULFAMETHOXAZOLE, TRIMETHOPRIM) [Concomitant]
  6. ALLOPURINOL [Concomitant]
  7. METHYCOBAL (MECOBALAMIN) [Concomitant]

REACTIONS (7)
  - BLOOD CREATININE INCREASED [None]
  - BLOOD UREA INCREASED [None]
  - DISEASE PROGRESSION [None]
  - DYSPNOEA [None]
  - METABOLIC ACIDOSIS [None]
  - OEDEMA [None]
  - TUMOUR LYSIS SYNDROME [None]
